FAERS Safety Report 8339372-4 (Version None)
Quarter: 2012Q2

REPORT INFORMATION
  Report Type: 
  Country: None (occurrence: None)
  Receive Date: 20120507
  Receipt Date: 20120501
  Transmission Date: 20120825
  Serious: Yes (Life-Threatening, Hospitalization)
  Sender: FDA-Public Use
  Company Number: US-US-EMD SERONO, INC.-7116187

PATIENT
  Sex: Male

DRUGS (2)
  1. REBIF [Suspect]
     Indication: MULTIPLE SCLEROSIS
     Route: 058
     Dates: start: 20120109
  2. REBIF [Suspect]
     Dates: start: 20120301

REACTIONS (3)
  - PNEUMONIA ASPIRATION [None]
  - GRAND MAL CONVULSION [None]
  - HYPERSENSITIVITY [None]
